FAERS Safety Report 17263530 (Version 1)
Quarter: 2020Q1

REPORT INFORMATION
  Report Type: Spontaneous
  Country: US (occurrence: US)
  Receive Date: 20200113
  Receipt Date: 20200113
  Transmission Date: 20200409
  Serious: No
  Sender: FDA-Public Use
  Company Number: US-GLENMARK PHARMACEUTICALS-2019GMK043357

PATIENT

DRUGS (2)
  1. ARSENIC [Concomitant]
     Active Substance: ARSENIC
     Indication: PRODUCT USED FOR UNKNOWN INDICATION
     Dosage: UNK
     Route: 042
  2. TRETINOIN CAPSULES 10MG [Suspect]
     Active Substance: TRETINOIN
     Indication: PANCYTOPENIA
     Dosage: 10 MG, BID; (45MG/M2 /Q12)
     Route: 048
     Dates: start: 20190911

REACTIONS (2)
  - Product use in unapproved indication [Unknown]
  - Liver function test increased [Unknown]

NARRATIVE: CASE EVENT DATE: 201909
